FAERS Safety Report 4501895-3 (Version None)
Quarter: 2004Q4

REPORT INFORMATION
  Report Type: 
  Country: None (occurrence: None)
  Receive Date: 20041116
  Receipt Date: 20041110
  Transmission Date: 20050328
  Serious: Yes (Hospitalization)
  Sender: FDA-Public Use
  Company Number: 200421253GDDC

PATIENT
  Age: 69 Year
  Sex: Male

DRUGS (1)
  1. RILUZOLE [Suspect]
     Indication: AMYOTROPHIC LATERAL SCLEROSIS
     Dosage: DOSE: 1 TAB
     Route: 048

REACTIONS (5)
  - DIZZINESS [None]
  - HYPERHIDROSIS [None]
  - MALAISE [None]
  - NASAL CONGESTION [None]
  - NAUSEA [None]
